FAERS Safety Report 6400955-X (Version None)
Quarter: 2009Q4

REPORT INFORMATION
  Report Type: 
  Country: None (occurrence: None)
  Receive Date: 20091015
  Receipt Date: 20070712
  Transmission Date: 20100525
  Serious: Yes (Other)
  Sender: FDA-Public Use
  Company Number: US-ASTRAZENECA-2006UW24050

PATIENT
  Age: 541 Month
  Sex: Female
  Weight: 92.1 kg

DRUGS (15)
  1. SEROQUEL [Suspect]
     Indication: HALLUCINATION, AUDITORY
     Route: 048
     Dates: start: 19980101, end: 20061201
  2. SEROQUEL [Suspect]
     Indication: SLEEP DISORDER
     Route: 048
     Dates: start: 19980101, end: 20061201
  3. SEROQUEL [Suspect]
     Dosage: 25 MG-300 MG
     Route: 048
     Dates: start: 20030422
  4. SEROQUEL [Suspect]
     Dosage: 25 MG-300 MG
     Route: 048
     Dates: start: 20030422
  5. SEROQUEL [Suspect]
     Dosage: 100 MG EVERY 1 AND HALF HOUR IN 24 HOURS
     Route: 048
     Dates: start: 20031218
  6. SEROQUEL [Suspect]
     Dosage: 100 MG EVERY 1 AND HALF HOUR IN 24 HOURS
     Route: 048
     Dates: start: 20031218
  7. ZYPREXA [Concomitant]
     Dosage: 10 MG-30 MG
     Route: 048
     Dates: start: 19990728
  8. TRAZODONE [Concomitant]
     Dates: start: 20010621
  9. LEXAPRO [Concomitant]
     Dosage: 10 MG-20 MG
     Route: 048
     Dates: start: 20050420
  10. DEPAKOTE [Concomitant]
     Route: 048
     Dates: start: 20050420
  11. LIPITOR [Concomitant]
     Route: 048
     Dates: start: 20031218
  12. GLUCOPHAGE [Concomitant]
     Route: 048
     Dates: start: 20070419
  13. EFFEXOR [Concomitant]
     Dates: start: 20031218
  14. AMITRIPTYLINE [Concomitant]
     Dosage: 50 MG-75 MG
     Route: 048
     Dates: start: 19990728
  15. ZOLOFT [Concomitant]
     Dates: start: 19990728

REACTIONS (4)
  - BLOOD CHOLESTEROL INCREASED [None]
  - DIABETES MELLITUS [None]
  - DIABETIC NEUROPATHY [None]
  - TYPE 2 DIABETES MELLITUS [None]
